FAERS Safety Report 7341571-5 (Version None)
Quarter: 2011Q1

REPORT INFORMATION
  Report Type: 
  Country: None (occurrence: None)
  Receive Date: 20110309
  Receipt Date: 20110222
  Transmission Date: 20110831
  Serious: Yes (Other)
  Sender: FDA-Public Use
  Company Number: US-BAYER-2011-012086

PATIENT
  Sex: Male

DRUGS (3)
  1. ANTIHYPERTENSIVES [Concomitant]
  2. SORAFENIB (RAF KINASE INHIBITOR) [Suspect]
     Indication: THYROID CANCER
     Dosage: 400 MG, BID
     Route: 048
     Dates: start: 20110130, end: 20110205
  3. SORAFENIB (RAF KINASE INHIBITOR) [Suspect]
     Dosage: 200 MG, BID
     Dates: start: 20110215

REACTIONS (7)
  - SKIN IRRITATION [None]
  - DIARRHOEA [None]
  - GLOSSODYNIA [None]
  - PAIN IN EXTREMITY [None]
  - ABASIA [None]
  - RASH [None]
  - BLOOD PRESSURE INCREASED [None]
